FAERS Safety Report 23977136 (Version 1)
Quarter: 2024Q2

REPORT INFORMATION
  Report Type: Spontaneous
  Country: CN (occurrence: CN)
  Receive Date: 20240614
  Receipt Date: 20240614
  Transmission Date: 20240716
  Serious: Yes (Hospitalization)
  Sender: FDA-Public Use
  Company Number: CN-SHANGHAI JUNSHI BIOSCIENCES CO., LTD.-CN2024010282

PATIENT

DRUGS (8)
  1. TORIPALIMAB [Suspect]
     Active Substance: TORIPALIMAB
     Indication: Lung neoplasm malignant
     Dosage: 240 MG  (DRIP RATE: 20-25 DRIPS/MIN)
     Route: 041
     Dates: start: 20240429, end: 20240429
  2. PEMETREXED [Suspect]
     Active Substance: PEMETREXED
     Indication: Lung neoplasm malignant
     Dosage: 0.8 G (DRIP RATE: 30 DROPS/MIN)
     Route: 041
     Dates: start: 20240428, end: 20240428
  3. CISPLATIN [Suspect]
     Active Substance: CISPLATIN
     Indication: Lung neoplasm malignant
     Dosage: 120 MG (DRIP RATE: 30-40 DROPS/MIN)
     Route: 041
     Dates: start: 20240428, end: 20240428
  4. SODIUM CHLORIDE [Concomitant]
     Active Substance: SODIUM CHLORIDE
     Indication: Medication dilution
     Dosage: 100 ML (DRIP RATE: 30 DROPS/MIN)
     Route: 041
     Dates: start: 20240428, end: 20240428
  5. SODIUM CHLORIDE [Concomitant]
     Active Substance: SODIUM CHLORIDE
     Dosage: 100 ML (DRIP RATE: 20-25 DRIPS/MIN)
     Route: 041
     Dates: start: 20240429, end: 20240429
  6. SODIUM CHLORIDE [Concomitant]
     Active Substance: SODIUM CHLORIDE
     Indication: Medication dilution
     Dosage: 500 ML (DRIP RATE: 30-40 DROPS/MIN)
     Route: 041
     Dates: start: 20240428, end: 20240428
  7. Di yu sheng bai [Concomitant]
     Indication: Product used for unknown indication
     Dosage: 0.4 G, TID
     Route: 048
     Dates: start: 20240501, end: 20240514
  8. LEUCOGEN [Concomitant]
     Active Substance: LEUCOGEN
     Indication: Product used for unknown indication
     Dosage: 20 MG, TID
     Route: 048
     Dates: start: 20240501, end: 20240510

REACTIONS (1)
  - Myelosuppression [Recovering/Resolving]

NARRATIVE: CASE EVENT DATE: 20240503
